FAERS Safety Report 24169973 (Version 2)
Quarter: 2024Q3

REPORT INFORMATION
  Report Type: Spontaneous
  Country: MX (occurrence: MX)
  Receive Date: 20240803
  Receipt Date: 20240810
  Transmission Date: 20241016
  Serious: Yes (Hospitalization)
  Sender: ROCHE
  Company Number: MX-ROCHE-10000042296

PATIENT
  Age: 77 Year
  Sex: Male
  Weight: 95 kg

DRUGS (2)
  1. TECENTRIQ [Suspect]
     Active Substance: ATEZOLIZUMAB
     Indication: Hepatocellular carcinoma
     Route: 042
     Dates: start: 20240605, end: 20240703
  2. AVASTIN [Suspect]
     Active Substance: BEVACIZUMAB
     Indication: Hepatocellular carcinoma
     Route: 042
     Dates: start: 20240605, end: 20240703

REACTIONS (3)
  - Fistula [Not Recovered/Not Resolved]
  - Fistula [Not Recovered/Not Resolved]
  - Urinary tract infection fungal [Not Recovered/Not Resolved]

NARRATIVE: CASE EVENT DATE: 20240725
